FAERS Safety Report 5802470-0 (Version None)
Quarter: 2008Q3

REPORT INFORMATION
  Report Type: 
  Country: None (occurrence: None)
  Receive Date: 20080708
  Receipt Date: 20080626
  Transmission Date: 20090109
  Serious: Yes (Hospitalization)
  Sender: FDA-Public Use
  Company Number: US-BAYER-200826795NA

PATIENT
  Age: 72 Year
  Sex: Female
  Weight: 59 kg

DRUGS (18)
  1. CIPRO [Suspect]
     Indication: URINARY TRACT INFECTION
     Route: 048
     Dates: start: 20080307, end: 20080319
  2. ANTI-ANGIOGENESIS AGENT AG-013736 [Suspect]
     Indication: COLORECTAL CANCER METASTATIC
  3. FLUOROURACIL [Suspect]
     Indication: COLORECTAL CANCER METASTATIC
     Route: 042
     Dates: start: 20080312
  4. FLUOROURACIL [Suspect]
  5. OXALIPLATIN [Suspect]
     Indication: COLORECTAL CANCER METASTATIC
     Route: 042
     Dates: start: 20080312
  6. BEVACIZUMAB [Suspect]
     Indication: COLORECTAL CANCER METASTATIC
     Route: 042
     Dates: start: 20080312
  7. LEUCOVORIN CALCIUM [Suspect]
     Indication: COLORECTAL CANCER METASTATIC
     Route: 042
     Dates: start: 20080312
  8. TENORMIN [Concomitant]
     Route: 048
     Dates: start: 20070820
  9. CLONIDINE [Concomitant]
     Route: 048
     Dates: start: 20080305, end: 20080319
  10. HYZAAR [Concomitant]
     Route: 048
     Dates: start: 20070820, end: 20080319
  11. DIFLUCAN [Concomitant]
     Route: 048
     Dates: start: 20080317
  12. PROMETHAZINE [Concomitant]
     Route: 061
     Dates: start: 20080318
  13. IBANDRONATE SODIUM [Concomitant]
     Route: 048
     Dates: start: 20071002
  14. POTASSIUM CHLORIDE [Concomitant]
     Dates: start: 19980101
  15. ZOCOR [Concomitant]
     Route: 048
     Dates: start: 20071206
  16. AMBIEN [Concomitant]
     Route: 048
     Dates: start: 20070701
  17. CALCIUM WITH VITAMIN D [Concomitant]
     Route: 048
     Dates: start: 20071002
  18. MULTI-VITAMIN [Concomitant]
     Dates: start: 19980101

REACTIONS (3)
  - HYPOVOLAEMIA [None]
  - MUCOSAL INFLAMMATION [None]
  - PYREXIA [None]
